FAERS Safety Report 18651007 (Version 1)
Quarter: 2020Q4

REPORT INFORMATION
  Report Type: Spontaneous
  Country: DE (occurrence: DE)
  Receive Date: 20201223
  Receipt Date: 20201223
  Transmission Date: 20210114
  Serious: Yes (Hospitalization)
  Sender: FDA-Public Use
  Company Number: DE-JNJFOC-20201233308

PATIENT
  Age: 91 Year
  Sex: Female

DRUGS (9)
  1. RISPERIDONE. [Suspect]
     Active Substance: RISPERIDONE
     Indication: PRODUCT USED FOR UNKNOWN INDICATION
     Dosage: 0.5 MG, ONCE A DAY, IN THE MORNING
     Route: 065
  2. MIRTAZAPIN [Suspect]
     Active Substance: MIRTAZAPINE
     Indication: PRODUCT USED FOR UNKNOWN INDICATION
     Dosage: 15 MG, HALF A PIECE OF DRUG A DAY, IN THE EVENING
     Route: 065
  3. METOPROLOL. [Concomitant]
     Active Substance: METOPROLOL
     Indication: PRODUCT USED FOR UNKNOWN INDICATION
     Dosage: 47.5 MG, TWICE A DAY, IN THE MORNING AND IN THE EVENING
     Route: 065
  4. RAMIPRIL. [Concomitant]
     Active Substance: RAMIPRIL
     Indication: PRODUCT USED FOR UNKNOWN INDICATION
     Dosage: 5 MG, ONCE A DAY, IN THE MORNING
     Route: 065
  5. TORASEMID [Suspect]
     Active Substance: TORSEMIDE
     Indication: PRODUCT USED FOR UNKNOWN INDICATION
     Dosage: 5 MG, ONCE A DAY, IN THE MORNING
     Route: 065
  6. PHENPROCOUMON [Suspect]
     Active Substance: PHENPROCOUMON
     Indication: PRODUCT USED FOR UNKNOWN INDICATION
     Dosage: 3 MG, ACCORDING TO MEDICATION PLAN
     Route: 065
  7. IBEROGAST [Concomitant]
     Active Substance: HERBALS
     Dosage: THREE TIMES A DAY, IN THE MORNING, AT NOON AND IN THE EVENING, 20 DROPS PER DOSE
     Route: 065
  8. RISPERIDONE. [Suspect]
     Active Substance: RISPERIDONE
     Dosage: 0.25 MG, ONCE A DAY, IN THE EVENING
     Route: 065
  9. SIMVASTATIN. [Concomitant]
     Active Substance: SIMVASTATIN
     Dosage: 20 MG, ONCE A DAY, IN THE EVENING
     Route: 065

REACTIONS (8)
  - Faecaloma [Unknown]
  - Product monitoring error [Unknown]
  - Overdose [Unknown]
  - International normalised ratio increased [Unknown]
  - Vomiting [Unknown]
  - Nausea [Unknown]
  - Dehydration [Unknown]
  - Abdominal pain [Unknown]

NARRATIVE: CASE EVENT DATE: 20201103
